FAERS Safety Report 11578099 (Version 2)
Quarter: 2015Q4

REPORT INFORMATION
  Report Type: Spontaneous
  Country: US (occurrence: US)
  Receive Date: 20150930
  Receipt Date: 20151109
  Transmission Date: 20160304
  Serious: Yes (Death, Hospitalization, Other)
  Sender: FDA-Public Use
  Company Number: US-PFIZER INC-2015323907

PATIENT
  Age: 63 Year
  Sex: Male

DRUGS (25)
  1. DIOVAN [Concomitant]
     Active Substance: VALSARTAN
     Indication: BLOOD PRESSURE MEASUREMENT
     Dosage: 160 MG, DAILY
     Route: 048
  2. MAG-OX [Concomitant]
     Active Substance: MAGNESIUM OXIDE
     Dosage: 400 MG, 2X/DAY
     Route: 048
  3. ZYLOPRIM [Concomitant]
     Active Substance: ALLOPURINOL
     Indication: GOUT
     Dosage: 100 MG, DAILY
     Route: 048
  4. DILTIAZEM HYDROCHLORIDE EXTENDED RELEASE [Concomitant]
     Active Substance: DILTIAZEM HYDROCHLORIDE
     Dosage: 360 MG, DAILY
     Route: 048
  5. CELLCEPT [Concomitant]
     Active Substance: MYCOPHENOLATE MOFETIL\MYCOPHENOLATE MOFETIL HYDROCHLORIDE
     Dosage: 1000 MG, 2X/DAY
     Route: 048
  6. LUMIGAN [Concomitant]
     Active Substance: BIMATOPROST
     Indication: GLAUCOMA
     Dosage: 1 GTT, DAILY (0.03 % DROPS, BEDTIME)
     Route: 047
  7. SYNTHROID [Concomitant]
     Active Substance: LEVOTHYROXINE SODIUM
     Indication: THYROID DISORDER
     Dosage: 137 ?G, DAILY
     Route: 048
  8. DEXILANT [Concomitant]
     Active Substance: DEXLANSOPRAZOLE
     Dosage: 60 MG, DAILY
  9. PROAIR HFA [Concomitant]
     Active Substance: ALBUTEROL SULFATE
     Indication: DYSPNOEA
     Dosage: UNK, AS NEEDED (INHALE 2 PUFFS EVERY 4-6 HOURS)
  10. OSCAL-D [Concomitant]
     Indication: MINERAL SUPPLEMENTATION
     Dosage: 250 MG, DAILY
     Route: 048
  11. LIDODERM [Concomitant]
     Active Substance: LIDOCAINE
     Indication: NEURALGIA
     Dosage: 5 %, DAILY (5 % PATCH 1 PATCH)
     Route: 061
  12. PROPINE [Concomitant]
     Active Substance: DIPIVEFRIN HYDROCHLORIDE
     Indication: GLAUCOMA
     Dosage: 1 GTT, 2X/DAY (0.1% OPTHAL SOLN, 5 ML SOLN )
     Route: 047
  13. TRUSOPT [Concomitant]
     Active Substance: DORZOLAMIDE HYDROCHLORIDE
     Indication: GLAUCOMA
     Dosage: 2 GTT, 2X/DAY (2 % DROPS 2 DROP )
     Route: 047
  14. BRIMONIDINE [Concomitant]
     Active Substance: BRIMONIDINE TARTRATE
     Indication: GLAUCOMA
     Dosage: 1 GTT, 2X/DAY (0.2 % DROPS 1 DROP )
  15. PRED FORTE [Concomitant]
     Active Substance: PREDNISOLONE ACETATE
     Indication: INFLAMMATION
     Dosage: 1 GTT, DAILY (1 % DROPS. SUSP 1 DROP)
     Route: 047
  16. AZOPT [Concomitant]
     Active Substance: BRINZOLAMIDE
     Indication: GLAUCOMA
     Dosage: 1 GTT, 2X/DAY (1 % DROPS. SUSP 1 DROP LEFT EYE )
     Route: 047
  17. COLCRYS [Concomitant]
     Active Substance: COLCHICINE
     Indication: GOUT
     Dosage: 0.6 MG, ALTERNATE DAY
     Route: 048
  18. PROGRAF [Concomitant]
     Active Substance: TACROLIMUS\TACROLIMUS ANHYDROUS
     Dosage: 1 MG, 2X/DAY
     Route: 048
  19. SERTRALINE HCL [Concomitant]
     Active Substance: SERTRALINE HYDROCHLORIDE
     Dosage: 25MG DAILY FOR 1 WEEK THEN 50MG DAILY
     Route: 048
  20. VIAGRA [Suspect]
     Active Substance: SILDENAFIL CITRATE
     Indication: ERECTILE DYSFUNCTION
     Dosage: 100 MG, AS NEEDED
  21. BYSTOLIC [Concomitant]
     Active Substance: NEBIVOLOL HYDROCHLORIDE
     Dosage: 10 MG, DAILY
     Route: 048
  22. PREDNISONE. [Concomitant]
     Active Substance: PREDNISONE
     Dosage: 2.5 MG, DAILY (EVERY MORNING)
     Route: 048
  23. PILOCARPINE. [Concomitant]
     Active Substance: PILOCARPINE
     Indication: GLAUCOMA
     Dosage: 1 GTT, 2X/DAY (4 % DROPS)
     Route: 047
  24. TRAVATAN [Concomitant]
     Active Substance: TRAVOPROST
     Indication: GLAUCOMA
     Dosage: 1 GTT, 1X/DAY (0.004% EYE DROP, 2.5 ML DROP 1 DROP)
     Route: 047
  25. AZELASTINE [Concomitant]
     Active Substance: AZELASTINE
     Dosage: UNK, 2X/DAY (137 MCG/0.137 ML SPRAY. PUMP 1 SPRAY)
     Route: 045

REACTIONS (6)
  - Death [Fatal]
  - Nasopharyngitis [Unknown]
  - Dyspnoea [Unknown]
  - Cardiac arrest [Unknown]
  - Acute coronary syndrome [Unknown]
  - Vomiting [Unknown]

NARRATIVE: CASE EVENT DATE: 201509
